FAERS Safety Report 8215529-8 (Version None)
Quarter: 2012Q1

REPORT INFORMATION
  Report Type: 
  Country: None (occurrence: None)
  Receive Date: 20120316
  Receipt Date: 20120305
  Transmission Date: 20120608
  Serious: Yes (Other)
  Sender: FDA-Public Use
  Company Number: ES-JNJFOC-20120303181

PATIENT
  Age: 52 Year
  Sex: Male

DRUGS (3)
  1. REMICADE [Suspect]
     Indication: COLITIS ULCERATIVE
     Dosage: 28 INFUSIONS
     Route: 042
     Dates: start: 20111126, end: 20120116
  2. MESALAMINE [Concomitant]
  3. AZATHIOPRINE [Concomitant]
     Indication: COLITIS ULCERATIVE

REACTIONS (2)
  - ANAL ABSCESS [None]
  - METASTATIC SQUAMOUS CELL CARCINOMA [None]
